FAERS Safety Report 9740294 (Version 1)
Quarter: 2013Q4

REPORT INFORMATION
  Report Type: Spontaneous
  Country: CH (occurrence: CH)
  Receive Date: 20131209
  Receipt Date: 20131209
  Transmission Date: 20140711
  Serious: Yes (Death)
  Sender: FDA-Public Use
  Company Number: CH-CUBIST PHARMACEUTICAL, INC.-2013CBST001277

PATIENT
  Sex: 0

DRUGS (7)
  1. CUBICIN [Suspect]
     Indication: STAPHYLOCOCCAL INFECTION
     Dosage: UNK UNK, UNK
     Route: 042
  2. CUBICIN [Suspect]
     Indication: OSTEOMYELITIS
  3. CUBICIN [Suspect]
     Indication: OFF LABEL USE
  4. CIPROFLOXACIN [Suspect]
     Indication: STAPHYLOCOCCAL INFECTION
     Dosage: UNK, UNK UNK
     Route: 042
  5. CIPROFLOXACIN [Suspect]
     Indication: OSTEOMYELITIS
  6. RIFAMPICIN [Suspect]
     Indication: STAPHYLOCOCCAL INFECTION
     Dosage: UNK, UNK UNK
     Route: 042
  7. RIFAMPICIN [Suspect]
     Indication: OSTEOMYELITIS

REACTIONS (2)
  - Multi-organ failure [Fatal]
  - Staphylococcal infection [Fatal]
